FAERS Safety Report 9507085 (Version 1)
Quarter: 2013Q3

REPORT INFORMATION
  Report Type: Spontaneous
  Country: CH (occurrence: None)
  Receive Date: 20130904
  Receipt Date: 20130904
  Transmission Date: 20140515
  Serious: Yes (Life-Threatening, Hospitalization, Other)
  Sender: FDA-Public Use
  Company Number: ADR-2013-01527

PATIENT
  Age: 7 Year
  Sex: Male

DRUGS (2)
  1. BACLOFEN INTRATHECAL [Suspect]
     Indication: DYSTONIA
  2. TETRABENAZINE [Suspect]
     Indication: DYSTONIA

REACTIONS (11)
  - Neuroleptic malignant syndrome [None]
  - Respiratory distress [None]
  - Dehydration [None]
  - Bronchitis [None]
  - Hypernatraemia [None]
  - Metabolic acidosis [None]
  - Rhabdomyolysis [None]
  - Drug withdrawal syndrome [None]
  - Serotonin syndrome [None]
  - Central nervous system infection [None]
  - Infection [None]
